FAERS Safety Report 8532734-1 (Version None)
Quarter: 2012Q3

REPORT INFORMATION
  Report Type: 
  Country: None (occurrence: None)
  Receive Date: 20120724
  Receipt Date: 20120718
  Transmission Date: 20120928
  Serious: Yes (Hospitalization, Other)
  Sender: FDA-Public Use
  Company Number: PHHY2009CA22381

PATIENT
  Sex: Male

DRUGS (14)
  1. GABAPENTIN [Concomitant]
     Indication: PAIN
  2. CARBAMAZEPINE [Concomitant]
  3. CITALOPRAM [Concomitant]
  4. CORTISONE ACETATE [Concomitant]
  5. EXJADE [Suspect]
     Indication: IRON OVERLOAD
     Dosage: 2000 MG, UNK
     Route: 048
     Dates: start: 20111001
  6. EXJADE [Suspect]
     Dosage: UNK UKN, UNK
     Route: 048
  7. MIRTAZAPINE [Concomitant]
  8. NABILONE [Concomitant]
  9. SEROQUEL [Concomitant]
  10. EXJADE [Suspect]
     Dosage: 1500 MG, UNK
     Route: 048
  11. HYDROMORPHONE HCL [Concomitant]
  12. EXJADE [Suspect]
     Indication: THALASSAEMIA
     Dosage: 1500 MG, UNK
     Route: 048
     Dates: start: 20090101
  13. METHADONE HCL [Concomitant]
  14. PANTOPRAZOLE [Concomitant]

REACTIONS (11)
  - FATIGUE [None]
  - ASTHENIA [None]
  - INFLUENZA [None]
  - DYSURIA [None]
  - WEIGHT DECREASED [None]
  - ACTIVITIES OF DAILY LIVING IMPAIRED [None]
  - VISUAL ACUITY REDUCED [None]
  - VOMITING [None]
  - DIARRHOEA [None]
  - MUSCLE SPASMS [None]
  - HYPOACUSIS [None]
